FAERS Safety Report 26146849 (Version 2)
Quarter: 2025Q4

REPORT INFORMATION
  Report Type: Spontaneous
  Country: EU (occurrence: EU)
  Receive Date: 20251211
  Receipt Date: 20251216
  Transmission Date: 20260118
  Serious: Yes (Death)
  Sender: TAIHO ONCOLOGY INC
  Company Number: EU-SERVIER-S25017553

PATIENT
  Age: 64 Year
  Sex: Male

DRUGS (1)
  1. LONSURF [Suspect]
     Active Substance: TIPIRACIL HYDROCHLORIDE\TRIFLURIDINE
     Indication: Gastrointestinal carcinoma in situ
     Dosage: 60 MG (3X20MG TABLETS), BID
     Route: 048
     Dates: start: 202510

REACTIONS (1)
  - Death [Fatal]

NARRATIVE: CASE EVENT DATE: 20251201
